FAERS Safety Report 8313643-X (Version None)
Quarter: 2012Q2

REPORT INFORMATION
  Report Type: 
  Country: None (occurrence: None)
  Receive Date: 20120426
  Receipt Date: 20120417
  Transmission Date: 20120825
  Serious: Yes (Hospitalization, Other)
  Sender: FDA-Public Use
  Company Number: US-ASTELLAS-2012US003341

PATIENT
  Sex: Male
  Weight: 60 kg

DRUGS (4)
  1. PROGRAF [Suspect]
     Indication: LIVER TRANSPLANT
     Dosage: 3 MG, BID
     Route: 048
     Dates: start: 19950811, end: 20110101
  2. PROGRAF [Suspect]
     Dosage: 3 MG, BID
     Route: 065
     Dates: start: 20120403
  3. CALCIUM [Concomitant]
     Indication: PRODUCT USED FOR UNKNOWN INDICATION
     Dosage: UNK
     Route: 065
  4. MULTI-VITAMIN [Concomitant]
     Indication: PRODUCT USED FOR UNKNOWN INDICATION
     Dosage: UID/QD
     Route: 065

REACTIONS (8)
  - ABDOMINAL OPERATION [None]
  - LIVER TRANSPLANT REJECTION [None]
  - INGUINAL HERNIA REPAIR [None]
  - CHOLESTATIC LIVER INJURY [None]
  - TREATMENT NONCOMPLIANCE [None]
  - HOSPITALISATION [None]
  - CARDIAC MURMUR [None]
  - RENAL DISORDER [None]
